FAERS Safety Report 24239532 (Version 2)
Quarter: 2025Q1

REPORT INFORMATION
  Report Type: Spontaneous
  Country: US (occurrence: US)
  Receive Date: 20240822
  Receipt Date: 20250227
  Transmission Date: 20250408
  Serious: No
  Sender: AVADEL CNS PHARMACEUTICALS, LLC
  Company Number: US-AVADEL CNS PHARMACEUTICALS, LLC-2024AVA00756

PATIENT
  Age: 56 Year
  Sex: Female
  Weight: 90.703 kg

DRUGS (23)
  1. LUMRYZ [Suspect]
     Active Substance: SODIUM OXYBATE
     Indication: Narcolepsy
     Dosage: 9 G, ONCE NIGHTLY
     Route: 048
     Dates: start: 20240502, end: 2024
  2. LUMRYZ [Suspect]
     Active Substance: SODIUM OXYBATE
     Indication: Cataplexy
     Dosage: 9 G, ONCE NIGHTLY
     Route: 048
     Dates: start: 2024
  3. ASPIRIN [Concomitant]
     Active Substance: ASPIRIN
     Dosage: 325 MG, EVERY EVENING
  4. LEVOTHYROXINE [Concomitant]
     Active Substance: LEVOTHYROXINE
     Dosage: 112 ?G, DAILY
  5. SINGULAIR [Concomitant]
     Active Substance: MONTELUKAST SODIUM
     Dosage: 10 MG, DAILY
  6. OMEPRAZOLE [Concomitant]
     Active Substance: OMEPRAZOLE
     Dosage: 40 MG, TWICE DAILY
  7. REQUIP [Concomitant]
     Active Substance: ROPINIROLE HYDROCHLORIDE
     Dosage: 1.25 MG, DAILY
  8. BUSPAR [Concomitant]
     Active Substance: BUSPIRONE HYDROCHLORIDE
     Dosage: 10 MG, THRICE DAILY
  9. LEXAPRO [Concomitant]
     Active Substance: ESCITALOPRAM OXALATE
     Dosage: 20 MG, ONCE DAILY
  10. DITROPAN XL [Concomitant]
     Active Substance: OXYBUTYNIN CHLORIDE
     Dosage: 5 MG, ONCE DAILY
  11. LASIX [Concomitant]
     Active Substance: FUROSEMIDE
     Dosage: 20 MG, ONCE DAILY
  12. WAKIX [Concomitant]
     Active Substance: PITOLISANT HYDROCHLORIDE
  13. XOLAIR [Concomitant]
     Active Substance: OMALIZUMAB
  14. PROAIR HFA [Concomitant]
     Active Substance: ALBUTEROL SULFATE
  15. METHYLPHENIDATE HYDROCHLORIDE [Concomitant]
     Active Substance: METHYLPHENIDATE HYDROCHLORIDE
  16. MODAFINIL [Concomitant]
     Active Substance: MODAFINIL
  17. LEVOTHYROXINE SODIUM [Concomitant]
     Active Substance: LEVOTHYROXINE SODIUM
  18. FUROSEMIDE [Concomitant]
     Active Substance: FUROSEMIDE
  19. ASPIRIN [Concomitant]
     Active Substance: ASPIRIN
  20. PRILOSEC [Concomitant]
     Active Substance: OMEPRAZOLE MAGNESIUM
  21. LYRICA [Concomitant]
     Active Substance: PREGABALIN
  22. ROPINIROLE [Concomitant]
     Active Substance: ROPINIROLE
  23. BUSPIRONE HCL [Concomitant]
     Active Substance: BUSPIRONE HYDROCHLORIDE

REACTIONS (4)
  - Initial insomnia [Not Recovered/Not Resolved]
  - Middle insomnia [Not Recovered/Not Resolved]
  - Somnolence [Not Recovered/Not Resolved]
  - Therapeutic product effect delayed [Not Recovered/Not Resolved]

NARRATIVE: CASE EVENT DATE: 20240501
